FAERS Safety Report 21099274 (Version 1)
Quarter: 2022Q3

REPORT INFORMATION
  Report Type: Report from Study
  Country: CN (occurrence: CN)
  Receive Date: 20220719
  Receipt Date: 20220719
  Transmission Date: 20221026
  Serious: Yes (Life-Threatening, Hospitalization, Other)
  Sender: FDA-Public Use
  Company Number: CN-AstraZeneca-2022A219031

PATIENT
  Age: 62 Year
  Sex: Female
  Weight: 57 kg

DRUGS (5)
  1. FAM-TRASTUZUMAB DERUXTECAN-NXKI [Suspect]
     Active Substance: FAM-TRASTUZUMAB DERUXTECAN-NXKI
     Indication: Adenocarcinoma
     Dosage: 360 MG/KG
     Route: 042
     Dates: start: 20220526, end: 20220526
  2. FAM-TRASTUZUMAB DERUXTECAN-NXKI [Suspect]
     Active Substance: FAM-TRASTUZUMAB DERUXTECAN-NXKI
     Dosage: 360 MG/KG
     Route: 042
     Dates: start: 20220616, end: 20220616
  3. FAM-TRASTUZUMAB DERUXTECAN-NXKI [Suspect]
     Active Substance: FAM-TRASTUZUMAB DERUXTECAN-NXKI
     Dosage: 360 MG/KG
     Route: 042
     Dates: start: 20220707, end: 20220707
  4. ZUDAN(ONDANSETRON HYDROCHLORIDE TABLETS) [Concomitant]
     Indication: Vomiting
     Route: 048
     Dates: start: 20220602
  5. ZUDAN(ONDANSETRON HYDROCHLORIDE TABLETS) [Concomitant]
     Indication: Nausea

REACTIONS (1)
  - Platelet count decreased [Not Recovered/Not Resolved]

NARRATIVE: CASE EVENT DATE: 20220602
